FAERS Safety Report 26144795 (Version 1)
Quarter: 2025Q4

REPORT INFORMATION
  Report Type: Spontaneous
  Country: US (occurrence: None)
  Receive Date: 20251210
  Receipt Date: 20251210
  Transmission Date: 20260118
  Serious: Yes (Death)
  Sender: FDA-CTU
  Company Number: None

PATIENT
  Age: 82 Year
  Sex: Female
  Weight: 46.72 kg

DRUGS (1)
  1. PROLIA [Suspect]
     Active Substance: DENOSUMAB
     Indication: Senile osteoporosis
     Dosage: 60 MG/ML : EVERY 6 MONTHS SUBCUTANEOUS
     Route: 058
     Dates: start: 20240526, end: 20250604

REACTIONS (1)
  - Death [None]

NARRATIVE: CASE EVENT DATE: 20251001
